FAERS Safety Report 5480791-1 (Version None)
Quarter: 2007Q4

REPORT INFORMATION
  Report Type: 
  Country: None (occurrence: None)
  Receive Date: 20071009
  Receipt Date: 20071001
  Transmission Date: 20080405
  Serious: Yes (Hospitalization)
  Sender: FDA-Public Use
  Company Number: US-PFIZER INC-2007030637

PATIENT
  Sex: Female
  Weight: 72.6 kg

DRUGS (2)
  1. BEXTRA [Suspect]
     Route: 048
     Dates: start: 20040107, end: 20040811
  2. LIPITOR [Concomitant]
     Indication: BLOOD CHOLESTEROL INCREASED

REACTIONS (1)
  - MYOCARDIAL INFARCTION [None]
